FAERS Safety Report 5325809-1 (Version None)
Quarter: 2007Q2

REPORT INFORMATION
  Report Type: 
  Country: None (occurrence: None)
  Receive Date: 20070510
  Receipt Date: 20070502
  Transmission Date: 20071010
  Serious: Yes (Other)
  Sender: FDA-Public Use
  Company Number: 2007SP008714

PATIENT
  Age: 48 Year
  Sex: Male
  Weight: 59 kg

DRUGS (3)
  1. PEG-INTRON [Suspect]
     Indication: HEPATITIS C
     Dosage: 100 MCG; QW; SC
     Route: 058
     Dates: start: 20060213, end: 20060731
  2. REBETOL [Suspect]
     Indication: HEPATITIS C
     Dosage: 800 MG; QD; PO
     Route: 048
     Dates: start: 20060213, end: 20060806
  3. METHADONE HCL [Concomitant]

REACTIONS (1)
  - MENTAL DISORDER DUE TO A GENERAL MEDICAL CONDITION [None]
